FAERS Safety Report 5564003-6 (Version None)
Quarter: 2007Q4

REPORT INFORMATION
  Report Type: 
  Country: None (occurrence: None)
  Receive Date: 20071217
  Receipt Date: 20071205
  Transmission Date: 20080405
  Serious: Yes (Other)
  Sender: FDA-Public Use
  Company Number: US-PFIZER INC-2007102916

PATIENT
  Sex: Female
  Weight: 84.09 kg

DRUGS (2)
  1. DILANTIN [Suspect]
     Indication: CONVULSION
     Dosage: DAILY DOSE:400MG-FREQ: TWICE DAILY
  2. DEPAKOTE [Concomitant]

REACTIONS (1)
  - CONVULSION [None]
